FAERS Safety Report 10902273 (Version 1)
Quarter: 2015Q1

REPORT INFORMATION
  Report Type: Spontaneous
  Country: US (occurrence: US)
  Receive Date: 20150310
  Receipt Date: 20150310
  Transmission Date: 20150721
  Serious: Yes (Other)
  Sender: FDA-Public Use
  Company Number: US-BAYER-2015-032359

PATIENT
  Sex: Female

DRUGS (2)
  1. BAYER LOW DOSE [Suspect]
     Active Substance: ASPIRIN
     Indication: PAIN IN JAW
     Dosage: 2 DF, ONCE
     Dates: start: 201002
  2. BAYER LOW DOSE [Suspect]
     Active Substance: ASPIRIN
     Indication: MUSCULOSKELETAL PAIN

REACTIONS (5)
  - Pain in extremity [Unknown]
  - Hyperhidrosis [Unknown]
  - Therapeutic response unexpected [Unknown]
  - Myocardial infarction [Unknown]
  - Drug ineffective [Unknown]
